FAERS Safety Report 8651384 (Version 4)
Quarter: 2013Q2

REPORT INFORMATION
  Report Type: Spontaneous
  Country: US (occurrence: US)
  Receive Date: 20120706
  Receipt Date: 20130604
  Transmission Date: 20140414
  Serious: Yes (Other)
  Sender: FDA-Public Use
  Company Number: US-AMGEN-USASP2012039694

PATIENT
  Age: 54 Year
  Sex: Female

DRUGS (18)
  1. ENBREL [Suspect]
     Indication: PRODUCT USED FOR UNKNOWN INDICATION
     Dosage: UNK
  2. HUMIRA [Suspect]
     Dosage: UNK
  3. VITAMIN D3 [Concomitant]
     Dosage: 1000 UNIT, 2 TABLETS BY MOUTH
     Route: 048
  4. FLEXERIL                           /00428402/ [Concomitant]
     Indication: MUSCLE SPASMS
     Dosage: 10 MG, 1 TABLET BY MOUTH THREE TIMES DAILY AS NEEDED
     Route: 048
  5. CYMBALTA [Concomitant]
     Dosage: 60 MG, 1 CAPSULE BY MOUTH DAILY
     Route: 048
  6. NEXIUM                             /01479302/ [Concomitant]
     Dosage: 40 MG BY MOUTH TWO TIMES DAILY BEFORE MEALS
     Route: 048
  7. ESTRACE [Concomitant]
     Dosage: 2 MG, 1 TABLET BY MOUTH TWO TIMES DAILY
     Route: 048
  8. EXFORGE [Concomitant]
     Dosage: 10-320 MG 1 TABLET BY MOUTH DAILY
     Route: 048
  9. TRICOR                             /00499301/ [Concomitant]
     Dosage: 145 MG, 1 TABLET BY MOUTH DAILY
     Route: 048
  10. FOLVITE                            /00024201/ [Concomitant]
     Dosage: 1 MG, 1 TABLET BY MOUTH DAILY
     Route: 048
  11. NEURONTIN [Concomitant]
     Dosage: 600 MG, 1 TABLET BY MOUTH THREE TIMES DAILY
     Route: 048
  12. LOVAZA [Concomitant]
     Dosage: 1 G, TWO CAPSULES BY MOUTH TWO TIMES DAILY
     Route: 048
  13. MULTIVITAMINS, PLAIN [Concomitant]
     Dosage: 1 TABLET BY MOUTH DAILY
     Route: 048
  14. PERCOCET                           /00446701/ [Concomitant]
     Dosage: 10-325 MG, 1 TABLET BY MOUTH EVERY FOUR HOURS AS NEEDED
     Route: 048
  15. DELTASONE                          /00044701/ [Concomitant]
     Dosage: 10 MG, BY MOUTH DAILY
     Route: 048
  16. PTU [Concomitant]
     Dosage: 50 MG, THREE TABLETS BY MOUTH THREE TIMES DAILY
     Route: 048
  17. RESTORIL                           /00393701/ [Concomitant]
     Dosage: 30 MG, 1 CAPSULE BY MOUTH NIGHTLY AS NEEDED FOR SLEEP
     Route: 048
  18. VYTORIN [Concomitant]
     Dosage: 10-40 MG, 1 TABLET BY MOUTH NIGHTLY
     Route: 048

REACTIONS (19)
  - Drug hypersensitivity [Unknown]
  - Depression [Unknown]
  - Renal failure [Unknown]
  - Hypovolaemia [Unknown]
  - Blood cholesterol increased [Unknown]
  - Hyperthyroidism [Unknown]
  - Essential hypertension [Unknown]
  - Tension headache [Unknown]
  - Oedema [Unknown]
  - Menopausal symptoms [Unknown]
  - Neuropathy peripheral [Unknown]
  - Insomnia [Unknown]
  - Vitamin D deficiency [Unknown]
  - Gastrooesophageal reflux disease [Unknown]
  - Back pain [Unknown]
  - Muscular weakness [Unknown]
  - Hypoaesthesia [Unknown]
  - Rheumatoid arthritis [Unknown]
  - Paraesthesia [Unknown]
